FAERS Safety Report 10184872 (Version 1)
Quarter: 2014Q2

REPORT INFORMATION
  Report Type: Spontaneous
  Country: US (occurrence: US)
  Receive Date: 20140521
  Receipt Date: 20140521
  Transmission Date: 20141212
  Serious: Yes (Other)
  Sender: FDA-Public Use
  Company Number: US-ASTELLAS-2014US005465

PATIENT
  Age: 50 Year
  Sex: Male

DRUGS (2)
  1. ASTAGRAF XL [Suspect]
     Indication: PRODUCT USED FOR UNKNOWN INDICATION
     Dosage: UNK, UNKNOWN FREQ.
     Route: 065
  2. ASTAGRAF XL [Suspect]
     Dosage: UNK, UNKNOWN FREQ.
     Route: 065

REACTIONS (1)
  - Unevaluable event [Unknown]
